FAERS Safety Report 9271687 (Version 1)
Quarter: 2013Q2

REPORT INFORMATION
  Report Type: Spontaneous
  Country: FR (occurrence: FR)
  Receive Date: 20130506
  Receipt Date: 20130506
  Transmission Date: 20140414
  Serious: Yes (Hospitalization)
  Sender: FDA-Public Use
  Company Number: FR-PFIZER INC-2013134008

PATIENT
  Age: 72 Year
  Sex: Male

DRUGS (16)
  1. SUTENT [Suspect]
     Indication: RENAL CANCER METASTATIC
     Dosage: 37.5 MG
     Route: 048
     Dates: start: 20120220, end: 20120318
  2. SUTENT [Suspect]
     Dosage: 50 MG ONCE DAILY 4 WEEKS OUT OF 6
     Route: 048
     Dates: start: 20120402, end: 20120424
  3. SUTENT [Suspect]
     Dosage: 50 MG ONCE DAILY 4 WEEKS OUT OF 6
     Route: 048
     Dates: start: 20120514, end: 20120610
  4. SUTENT [Suspect]
     Dosage: 50 MG ONCE DAILY 4 WEEKS OUT OF 6
     Route: 048
     Dates: start: 20120625, end: 20120722
  5. SUTENT [Suspect]
     Dosage: 50 MG ONCE DAILY 4 WEEKS OUT OF 6
     Route: 048
     Dates: start: 20120806, end: 20120831
  6. SUTENT [Suspect]
     Dosage: 50 MG ONCE DAILY 4 WEEKS OUT OF 6
     Route: 048
     Dates: start: 20120917, end: 20121013
  7. SUTENT [Suspect]
     Dosage: 50 MG ONCE DAILY 4 WEEKS OUT OF 6
     Route: 048
     Dates: start: 20121029, end: 20121125
  8. SUTENT [Suspect]
     Dosage: 50 MG ONCE DAILY 4 WEEKS OUT OF 6
     Route: 048
     Dates: start: 20121210, end: 20130106
  9. SUTENT [Suspect]
     Dosage: 50 MG ONCE DAILY 4 WEEKS OUT OF 6
     Route: 048
     Dates: start: 20130121, end: 20130216
  10. SUTENT [Suspect]
     Dosage: 50 MG ONCE DAILY 4 WEEKS OUT OF 6
     Route: 048
     Dates: start: 20130304, end: 20130330
  11. PRAVASTATIN [Concomitant]
  12. GLIMEPIRIDE [Concomitant]
  13. RAMIPRIL [Concomitant]
  14. ALLOPURINOL [Concomitant]
  15. KARDEGIC [Concomitant]
     Dosage: 75 MG, 1X/DAY
  16. ESIDREX [Concomitant]

REACTIONS (4)
  - Ejection fraction decreased [Not Recovered/Not Resolved]
  - Cardiac failure [Not Recovered/Not Resolved]
  - Ventricular hypokinesia [Not Recovered/Not Resolved]
  - Acute coronary syndrome [Recovered/Resolved with Sequelae]
